FAERS Safety Report 9601725 (Version 1)
Quarter: 2013Q4

REPORT INFORMATION
  Report Type: Spontaneous
  Country: US (occurrence: None)
  Receive Date: 20131004
  Receipt Date: 20131004
  Transmission Date: 20140711
  Serious: Yes (Other)
  Sender: FDA-Public Use
  Company Number: None

PATIENT
  Age: 62 Year
  Sex: Female
  Weight: 70.31 kg

DRUGS (2)
  1. PROLIA [Suspect]
     Indication: BONE DISORDER
     Dosage: ONE SHOT/ 2X YEAR
  2. PROLIA [Suspect]
     Indication: BONE DECALCIFICATION
     Dosage: ONE SHOT/ 2X YEAR

REACTIONS (2)
  - Intervertebral disc protrusion [None]
  - Spinal cord compression [None]
